APPROVED DRUG PRODUCT: DOTAREM
Active Ingredient: GADOTERATE MEGLUMINE
Strength: 3.769GM/10ML (376.9MG/ML)
Dosage Form/Route: SOLUTION;INTRAVENOUS
Application: N204781 | Product #002 | TE Code: AP
Applicant: GUERBET LLC
Approved: Mar 20, 2013 | RLD: Yes | RS: Yes | Type: RX